FAERS Safety Report 9513397 (Version 1)
Quarter: 2013Q3

REPORT INFORMATION
  Report Type: Spontaneous
  Country: US (occurrence: US)
  Receive Date: 20130910
  Receipt Date: 20130910
  Transmission Date: 20140515
  Serious: No
  Sender: FDA-Public Use
  Company Number: US-TARO-2012P1050839

PATIENT
  Age: 62 Year
  Sex: Male
  Weight: 51.26 kg

DRUGS (3)
  1. WARFARIN SODIUM TABLETS USP 2MG [Suspect]
     Indication: ATRIAL FIBRILLATION
     Route: 048
     Dates: start: 20120405, end: 20120713
  2. WARFARIN SODIUM TABLETS USP 2MG [Suspect]
     Indication: ATRIAL FIBRILLATION
     Route: 048
     Dates: start: 20120405, end: 20120713
  3. WARFARIN SODIUM TABLETS USP 2MG [Suspect]
     Indication: ATRIAL FIBRILLATION
     Route: 048
     Dates: start: 20120713

REACTIONS (2)
  - International normalised ratio fluctuation [Recovered/Resolved]
  - Product substitution issue [Recovered/Resolved]
